FAERS Safety Report 17932376 (Version 1)
Quarter: 2020Q2

REPORT INFORMATION
  Report Type: Spontaneous
  Country: US (occurrence: US)
  Receive Date: 20200624
  Receipt Date: 20200624
  Transmission Date: 20200714
  Serious: No
  Sender: FDA-Public Use
  Company Number: US-PRINSTON PHARMACEUTICAL INC.-2020PRN00124

PATIENT
  Sex: Female

DRUGS (2)
  1. DONEPEZIL. [Suspect]
     Active Substance: DONEPEZIL
     Dosage: UNK
     Dates: end: 202004
  2. DONEPEZIL. [Suspect]
     Active Substance: DONEPEZIL
     Dosage: UNK
     Dates: start: 202004

REACTIONS (2)
  - Muscle twitching [Not Recovered/Not Resolved]
  - Muscle spasms [Unknown]
